FAERS Safety Report 4418479-8 (Version None)
Quarter: 2004Q3

REPORT INFORMATION
  Report Type: 
  Country: None (occurrence: None)
  Receive Date: 20040809
  Receipt Date: 20040507
  Transmission Date: 20050211
  Serious: No
  Sender: FDA-Public Use
  Company Number: US-GLAXOSMITHKLINE-A0510179A

PATIENT
  Age: 24 Year
  Sex: Male
  Weight: 93.2 kg

DRUGS (2)
  1. PAXIL CR [Suspect]
     Indication: DRUG USE FOR UNKNOWN INDICATION
     Dosage: 25MG UNKNOWN
     Route: 048
     Dates: start: 20040323, end: 20040408
  2. NO CONCURRENT MEDICATION [Concomitant]

REACTIONS (2)
  - MICTURITION URGENCY [None]
  - URINARY HESITATION [None]
